FAERS Safety Report 5310213-2 (Version None)
Quarter: 2007Q2

REPORT INFORMATION
  Report Type: 
  Country: None (occurrence: None)
  Receive Date: 20070427
  Receipt Date: 20070416
  Transmission Date: 20071010
  Serious: Yes (Other)
  Sender: FDA-Public Use
  Company Number: JP-ROCHE-443698

PATIENT
  Age: 9 Year
  Sex: Female
  Weight: 30 kg

DRUGS (3)
  1. TAMIFLU [Suspect]
     Indication: INFLUENZA
     Dosage: FORM REPORTED: DRY SYRUP.
     Route: 048
     Dates: start: 20060316, end: 20060316
  2. COCARL [Suspect]
     Indication: DRUG USE FOR UNKNOWN INDICATION
     Route: 048
     Dates: start: 20060316, end: 20060316
  3. COLD REMEDY NOS [Concomitant]
     Dosage: REPORTED AS AGENTS USED FOR COMMON COLD.
     Dates: start: 20060316

REACTIONS (2)
  - ABNORMAL BEHAVIOUR [None]
  - RESTLESSNESS [None]
